FAERS Safety Report 17689476 (Version 1)
Quarter: 2020Q2

REPORT INFORMATION
  Report Type: Spontaneous
  Country: US (occurrence: US)
  Receive Date: 20200421
  Receipt Date: 20200421
  Transmission Date: 20200714
  Serious: No
  Sender: FDA-Public Use
  Company Number: None

PATIENT
  Age: 72 Year
  Sex: Male
  Weight: 95.85 kg

DRUGS (3)
  1. CEFTRIAXONE 2GM/100ML NS HOMEPUMP [Suspect]
     Active Substance: CEFTRIAXONE
     Indication: STAPHYLOCOCCAL SEPSIS
     Route: 041
     Dates: start: 20191011, end: 20191029
  2. BENADRYL [Concomitant]
     Active Substance: DIPHENHYDRAMINE HYDROCHLORIDE
  3. RIFAMPIN. [Concomitant]
     Active Substance: RIFAMPIN

REACTIONS (1)
  - Rash pruritic [None]

NARRATIVE: CASE EVENT DATE: 20191029
